FAERS Safety Report 23841783 (Version 1)
Quarter: 2024Q2

REPORT INFORMATION
  Report Type: Spontaneous
  Country: US (occurrence: US)
  Receive Date: 20240510
  Receipt Date: 20240510
  Transmission Date: 20240716
  Serious: No
  Sender: FDA-Public Use
  Company Number: US-COLLEGIUM PHARMACEUTICAL, INC.-20240400273

PATIENT

DRUGS (2)
  1. XTAMPZA ER [Suspect]
     Active Substance: OXYCODONE
     Indication: Product used for unknown indication
     Dosage: 27 MILLIGRAM, UNKNOWN
     Route: 065
  2. XTAMPZA ER [Suspect]
     Active Substance: OXYCODONE
     Dosage: 27 MILLIGRAM, UNKNOWN
     Route: 065

REACTIONS (3)
  - Product physical issue [Unknown]
  - Product expiration date issue [Unknown]
  - Product packaging quantity issue [Unknown]
